FAERS Safety Report 8067722-5 (Version None)
Quarter: 2012Q1

REPORT INFORMATION
  Report Type: 
  Country: None (occurrence: None)
  Receive Date: 20120124
  Receipt Date: 20120120
  Transmission Date: 20120608
  Serious: Yes (Hospitalization)
  Sender: FDA-Public Use
  Company Number: US-PFIZER INC-K200900406

PATIENT
  Age: 87 Year
  Sex: Female

DRUGS (13)
  1. AMLODIPINE [Suspect]
     Indication: HYPERTENSION
     Dosage: 2.5 MG, 1X/DAY
     Route: 048
     Dates: start: 20080801
  2. CIPRALEX /01588501/ [Concomitant]
     Indication: DEPRESSION
     Dosage: 10 MG, 1X/DAY
     Route: 048
  3. VESICARE [Concomitant]
     Indication: URGE INCONTINENCE
     Dosage: 20 MG, UNK
     Route: 048
     Dates: end: 20081012
  4. SIMVASTATIN [Concomitant]
     Indication: HYPERLIPIDAEMIA
     Dosage: 40 MG, UNK
     Route: 048
     Dates: start: 20051201
  5. SPASMEX /00376202/ [Concomitant]
     Indication: URGE INCONTINENCE
     Dosage: 2.5 MG, UNK
     Route: 048
     Dates: end: 20081012
  6. METOPROLOL [Suspect]
     Dosage: 95 MG, 1X/DAY
     Route: 048
     Dates: start: 20081001
  7. ALLOPURINOL MERCK [Concomitant]
     Indication: HYPERURICAEMIA
     Dosage: 100 MG, UNK
     Route: 048
  8. ALTACE [Suspect]
     Indication: HYPERTENSION
     Dosage: 5 MG, 1X/DAY
     Route: 048
     Dates: start: 20051201
  9. CLOPIDOGREL BISULFATE [Concomitant]
     Indication: AORTIC STENOSIS
     Dosage: 75 MG, UNK
     Route: 048
     Dates: start: 20051201
  10. HYDROCHLOROTHIAZIDE [Suspect]
     Indication: HYPERTENSION
     Dosage: 25 MG, 1X/DAY
     Route: 048
     Dates: start: 20051201
  11. METOPROLOL [Suspect]
     Indication: HYPERTENSION
     Dosage: 95 MG, 2X/DAY
     Route: 048
     Dates: start: 20051201, end: 20081011
  12. L-THYROXINE /00068001/ [Concomitant]
     Indication: HYPOTHYROIDISM
     Dosage: 75 UG, UNK
     Route: 048
  13. ESOMEPRAZOLE [Concomitant]
     Indication: PROPHYLAXIS AGAINST GASTROINTESTINAL ULCER
     Dosage: 20 MG, UNK
     Route: 048
     Dates: start: 20051201

REACTIONS (3)
  - HYPOTENSION [None]
  - SYNCOPE [None]
  - SINUS BRADYCARDIA [None]
